FAERS Safety Report 4703577-1 (Version None)
Quarter: 2005Q2

REPORT INFORMATION
  Report Type: 
  Country: None (occurrence: None)
  Receive Date: 20050628
  Receipt Date: 20050618
  Transmission Date: 20051028
  Serious: Yes (Other)
  Sender: FDA-Public Use
  Company Number: US015484

PATIENT
  Age: 25 Year
  Sex: Female
  Weight: 74.8435 kg

DRUGS (16)
  1. GABITRIL [Suspect]
     Indication: ANXIETY
     Dosage: 2 MG QHS; ORAL
     Route: 048
     Dates: start: 20050101, end: 20050101
  2. GABITRIL [Suspect]
     Indication: BIPOLAR DISORDER
     Dosage: 2 MG QHS; ORAL
     Route: 048
     Dates: start: 20050101, end: 20050101
  3. GABITRIL [Suspect]
     Indication: SLEEP DISORDER
     Dosage: 2 MG QHS; ORAL
     Route: 048
     Dates: start: 20050101, end: 20050101
  4. GABITRIL [Suspect]
     Indication: ANXIETY
     Dosage: 16 MG QHS; ORAL
     Route: 048
     Dates: start: 20050404, end: 20050101
  5. GABITRIL [Suspect]
     Indication: BIPOLAR DISORDER
     Dosage: 16 MG QHS; ORAL
     Route: 048
     Dates: start: 20050404, end: 20050101
  6. GABITRIL [Suspect]
     Indication: SLEEP DISORDER
     Dosage: 16 MG QHS; ORAL
     Route: 048
     Dates: start: 20050404, end: 20050101
  7. GABITRIL [Suspect]
     Indication: ANXIETY
     Dosage: 24 MG QHS; ORAL
     Route: 048
     Dates: start: 20050515, end: 20050605
  8. GABITRIL [Suspect]
     Indication: BIPOLAR DISORDER
     Dosage: 24 MG QHS; ORAL
     Route: 048
     Dates: start: 20050515, end: 20050605
  9. GABITRIL [Suspect]
     Indication: SLEEP DISORDER
     Dosage: 24 MG QHS; ORAL
     Route: 048
     Dates: start: 20050515, end: 20050605
  10. GABITRIL [Suspect]
     Indication: ANXIETY
     Dosage: 32 MG QHS; ORAL
     Route: 048
     Dates: start: 20050606, end: 20050606
  11. GABITRIL [Suspect]
     Indication: BIPOLAR DISORDER
     Dosage: 32 MG QHS; ORAL
     Route: 048
     Dates: start: 20050606, end: 20050606
  12. GABITRIL [Suspect]
     Indication: SLEEP DISORDER
     Dosage: 32 MG QHS; ORAL
     Route: 048
     Dates: start: 20050606, end: 20050606
  13. GABITRIL [Suspect]
     Indication: ANXIETY
     Dosage: 8 MG QD; ORAL
     Route: 048
     Dates: start: 20050601
  14. GABITRIL [Suspect]
     Indication: BIPOLAR DISORDER
     Dosage: 8 MG QD; ORAL
     Route: 048
     Dates: start: 20050601
  15. GABITRIL [Suspect]
     Indication: SLEEP DISORDER
     Dosage: 8 MG QD; ORAL
     Route: 048
     Dates: start: 20050601
  16. XANAX [Concomitant]

REACTIONS (2)
  - CONVULSION [None]
  - TREATMENT NONCOMPLIANCE [None]
